FAERS Safety Report 9140641 (Version 1)
Quarter: 2013Q1

REPORT INFORMATION
  Report Type: Spontaneous
  Country: GB (occurrence: GB)
  Receive Date: 20130305
  Receipt Date: 20130305
  Transmission Date: 20140127
  Serious: Yes (Other)
  Sender: FDA-Public Use
  Company Number: GB-TEVA-389232ISR

PATIENT
  Age: 39 Year
  Sex: Female
  Weight: 62.59 kg

DRUGS (5)
  1. COPAXONE [Suspect]
     Indication: MULTIPLE SCLEROSIS
     Dosage: 20MG/ML
     Route: 058
     Dates: start: 20121128
  2. GABAPENTIN [Concomitant]
  3. BACLOFEN [Concomitant]
  4. CO-CODAMOL [Concomitant]
  5. STEMETIL [Concomitant]

REACTIONS (3)
  - Nausea [Recovered/Resolved]
  - Dysgeusia [Recovering/Resolving]
  - Vomiting [Recovered/Resolved]
